FAERS Safety Report 5274926-3 (Version None)
Quarter: 2007Q1

REPORT INFORMATION
  Report Type: 
  Country: None (occurrence: None)
  Receive Date: 20061208
  Receipt Date: 20060403
  Transmission Date: 20070707
  Serious: Yes (Hospitalization)
  Sender: FDA-Public Use
  Company Number: 2006UW05788

PATIENT
  Age: 65 Year
  Sex: Female
  Weight: 81.646 kg

DRUGS (1)
  1. CRESTOR [Suspect]
     Indication: BLOOD CHOLESTEROL INCREASED
     Dosage: 5 MG DAILY PO
     Route: 048
     Dates: start: 20060301

REACTIONS (1)
  - NON-CARDIAC CHEST PAIN [None]
